FAERS Safety Report 12453676 (Version 2)
Quarter: 2016Q2

REPORT INFORMATION
  Report Type: Spontaneous
  Country: US (occurrence: US)
  Receive Date: 20160609
  Receipt Date: 20160614
  Transmission Date: 20160815
  Serious: Yes (Hospitalization, Other)
  Sender: FDA-Public Use
  Company Number: US-MDT-ADR-2016-01052

PATIENT
  Age: 28 Year
  Sex: Female

DRUGS (1)
  1. BACLOFEN. [Suspect]
     Active Substance: BACLOFEN
     Dosage: 75MCG/DAY
     Route: 037

REACTIONS (3)
  - Cerebrospinal fluid leakage [Recovered/Resolved]
  - Medical device site pain [Unknown]
  - Hypotonia [Unknown]

NARRATIVE: CASE EVENT DATE: 201605
